FAERS Safety Report 25325369 (Version 1)
Quarter: 2025Q2

REPORT INFORMATION
  Report Type: Spontaneous
  Country: CA (occurrence: CA)
  Receive Date: 20250516
  Receipt Date: 20250516
  Transmission Date: 20250717
  Serious: Yes (Other)
  Sender: PFIZER
  Company Number: CA-PFIZER INC-PV202300084879

PATIENT
  Age: 81 Year
  Sex: Female

DRUGS (7)
  1. BRAFTOVI [Suspect]
     Active Substance: ENCORAFENIB
     Indication: Colorectal cancer metastatic
     Dosage: 300 MG, DAILY (4 TABLETS)
     Dates: start: 20230504
  2. BRAFTOVI [Suspect]
     Active Substance: ENCORAFENIB
     Dosage: 300 MG, DAILY
  3. ARTHROTEC [Concomitant]
     Active Substance: DICLOFENAC SODIUM\MISOPROSTOL
  4. CANDESARTAN [Concomitant]
     Active Substance: CANDESARTAN
  5. CRESTOR [Concomitant]
     Active Substance: ROSUVASTATIN CALCIUM
  6. TIMOLOL [Concomitant]
     Active Substance: TIMOLOL
  7. CETUXIMAB [Concomitant]
     Active Substance: CETUXIMAB

REACTIONS (12)
  - Atrial fibrillation [Not Recovered/Not Resolved]
  - Malignant neoplasm progression [Unknown]
  - Colorectal cancer metastatic [Unknown]
  - Diarrhoea [Unknown]
  - Retching [Unknown]
  - Vomiting [Unknown]
  - Nausea [Unknown]
  - Vision blurred [Unknown]
  - Rash [Unknown]
  - Musculoskeletal discomfort [Not Recovered/Not Resolved]
  - Gait disturbance [Not Recovered/Not Resolved]
  - Dry throat [Not Recovered/Not Resolved]

NARRATIVE: CASE EVENT DATE: 20230501
